FAERS Safety Report 25529430 (Version 1)
Quarter: 2025Q3

REPORT INFORMATION
  Report Type: Spontaneous
  Country: US (occurrence: US)
  Receive Date: 20250708
  Receipt Date: 20250708
  Transmission Date: 20251021
  Serious: Yes (Life-Threatening, Other)
  Sender: PFIZER
  Company Number: US-PFIZER INC-PV202500076013

PATIENT
  Age: 46 Year
  Weight: 68 kg

DRUGS (2)
  1. EPINEPHRINE [Suspect]
     Active Substance: EPINEPHRINE
     Indication: Nerve block
  2. ROPIVACAINE [Suspect]
     Active Substance: ROPIVACAINE
     Indication: Nerve block

REACTIONS (1)
  - Seizure [Recovered/Resolved]
